FAERS Safety Report 25873005 (Version 2)
Quarter: 2025Q4

REPORT INFORMATION
  Report Type: Report from Study
  Country: EU (occurrence: EU)
  Receive Date: 20251002
  Receipt Date: 20251007
  Transmission Date: 20260118
  Serious: Yes (Hospitalization)
  Sender: ABBVIE
  Company Number: EU-ABBVIE-6486182

PATIENT
  Age: 76 Year
  Sex: Female

DRUGS (17)
  1. FOSCARBIDOPA\FOSLEVODOPA [Suspect]
     Active Substance: FOSCARBIDOPA\FOSLEVODOPA
     Indication: Parkinson^s disease
     Dosage: 240 MG + 12 MG, FREQUENCY TEXT: LOW: 1.2; HIGH: 0.45; BASE: 0.4; LOW: 0.3; EXTRA: 0.3?FIRST ADMIN...
     Route: 058
  2. FOSCARBIDOPA\FOSLEVODOPA [Suspect]
     Active Substance: FOSCARBIDOPA\FOSLEVODOPA
     Dosage: 240 MG + 12 MG, FREQUENCY TEXT: HIGH:0.55;BASE:0.49;LOW:0.52?LAST ADMIN DATE: SEP 2025
     Route: 058
     Dates: start: 20250922
  3. AMANTADINE HYDROCHLORIDE [Concomitant]
     Active Substance: AMANTADINE HYDROCHLORIDE
     Indication: Product used for unknown indication
     Dosage: FREQUENCY TEXT: AT BREAKFAST ?START DATE TEXT: BEFORE DUODOPA SUBCUTANEOUS
  4. IRBESARTAN [Concomitant]
     Active Substance: IRBESARTAN
     Indication: Product used for unknown indication
     Dosage: START DATE TEXT: BEFORE DUODOPA SUBCUTANEOUS
  5. LYRICA [Concomitant]
     Active Substance: PREGABALIN
     Indication: Product used for unknown indication
     Dosage: FORM STRENGTH: 75 MILLIGRAM ?FREQUENCY TEXT: (8-12.30) ?START DATE TEXT: BEFORE DUODOPA SUBCUTANEOUS
  6. RIVOTRIL [Concomitant]
     Active Substance: CLONAZEPAM
     Indication: Product used for unknown indication
     Dosage: 0.5,  FREQUENCY TEXT: BEDTIME ?START DATE TEXT: BEFORE DUODOPA SUBCUTANEOUS
  7. SINEMET [Concomitant]
     Active Substance: CARBIDOPA\LEVODOPA
     Indication: Product used for unknown indication
     Dosage: FREQUENCY TEXT: AT BEDTIME ?START DATE TEXT: BEFORE DUODOPA SUBCUTANEOUS ?STOP DATE TEXT: AFTER D...
  8. PLAVIX [Concomitant]
     Active Substance: CLOPIDOGREL BISULFATE
     Indication: Product used for unknown indication
     Dosage: START DATE TEXT: BEFORE DUODOPA SUBCUTANEOUS
  9. RIVASTIGMINE [Concomitant]
     Active Substance: RIVASTIGMINE
     Indication: Product used for unknown indication
     Dosage: START DATE TEXT: BEFORE DUODOPA SUBCUTANEOUS
  10. OPICAPONE [Concomitant]
     Active Substance: OPICAPONE
     Indication: Product used for unknown indication
     Dosage: START DATE TEXT: BEFORE DUODOPA SUBCUTANEOUS, STOP DATE TEXT: AFTER DUODOPA SUBCUTANEOUS,  START ...
     Dates: end: 202509
  11. ONGENTYS [Concomitant]
     Active Substance: OPICAPONE
     Indication: Product used for unknown indication
     Dosage: START DATE TEXT: BEFORE DUODOPA SUBCUTANEOUS ?STOP DATE TEXT: AFTER DUODOPA SUBCUTANEOUS
  12. BENSERAZIDE HYDROCHLORIDE\LEVODOPA [Concomitant]
     Active Substance: BENSERAZIDE HYDROCHLORIDE\LEVODOPA
     Indication: Product used for unknown indication
     Dosage: 200, FREQUENCY TEXT: 8-12.30-17.30 ?START DATE TEXT: BEFORE DUODOPA SUBCUTANEOUS ?STOP DATE TEXT:...
  13. BENSERAZIDE HYDROCHLORIDE\LEVODOPA [Concomitant]
     Active Substance: BENSERAZIDE HYDROCHLORIDE\LEVODOPA
     Indication: Product used for unknown indication
     Dosage: FREQUENCY TEXT: 1/2CP (20 ?START DATE TEXT: BEFORE DUODOPA SUBCUTANEOUS ?STOP DATE TEXT: AFTER DU...
  14. BENSERAZIDE HYDROCHLORIDE\LEVODOPA [Concomitant]
     Active Substance: BENSERAZIDE HYDROCHLORIDE\LEVODOPA
     Indication: Product used for unknown indication
     Dosage: FREQUENCY TEXT: 3/4 CP (10- 15) ?START DATE TEXT: BEFORE DUODOPA SUBCUTANEOUS ?STOP DATE TEXT: AF...
  15. CIPRALEX [Concomitant]
     Active Substance: ESCITALOPRAM OXALATE
     Indication: Product used for unknown indication
     Dosage: FORM STRENGTH: 20 MILLIGRAM ?FREQUENCY TEXT: AT BREAKFAST ?START DATE TEXT: BEFORE DUODOPA SUBCUT...
  16. KEPPRA [Concomitant]
     Active Substance: LEVETIRACETAM
     Indication: Product used for unknown indication
     Dosage: FREQUENCY TEXT: (8-17.30) ?START DATE TEXT: BEFORE DUODOPA SUBCUTANEOUS
  17. QUETIAPINE [Concomitant]
     Active Substance: QUETIAPINE
     Indication: Product used for unknown indication
     Dosage: FORM STRENGTH: 25 MILLIGRAM?FREQUENCY TEXT: AT BEDTIME ?START DATE TEXT: BEFORE DUODOPA SUBCUTANEOUS

REACTIONS (1)
  - Confusional state [Recovering/Resolving]

NARRATIVE: CASE EVENT DATE: 20250924
